FAERS Safety Report 4826405-2 (Version None)
Quarter: 2005Q4

REPORT INFORMATION
  Report Type: 
  Country: None (occurrence: None)
  Receive Date: 20051014
  Receipt Date: 20050714
  Transmission Date: 20060501
  Serious: No
  Sender: FDA-Public Use
  Company Number: 2005SP001899

PATIENT
  Age: 75 Year
  Sex: Female
  Weight: 99.7913 kg

DRUGS (3)
  1. LUNESTA [Suspect]
     Indication: INSOMNIA
     Dosage: 2 MG;HS;ORAL
     Route: 048
     Dates: start: 20050713, end: 20050713
  2. MAGNESIUM [Concomitant]
  3. VITAMINS [Concomitant]

REACTIONS (8)
  - HANGOVER [None]
  - HEADACHE [None]
  - HYPOREFLEXIA [None]
  - MUSCLE SPASMS [None]
  - NAUSEA [None]
  - NOCTURIA [None]
  - PARADOXICAL DRUG REACTION [None]
  - SOMNOLENCE [None]
